FAERS Safety Report 11795319 (Version 6)
Quarter: 2016Q1

REPORT INFORMATION
  Report Type: Spontaneous
  Country: US (occurrence: US)
  Receive Date: 20151202
  Receipt Date: 20160212
  Transmission Date: 20160525
  Serious: Yes (Hospitalization)
  Sender: FDA-Public Use
  Company Number: US-ACTELION PHARMACEUTICALS US, INC.-A-US2015-127981

PATIENT
  Age: 60 Year
  Sex: Female

DRUGS (6)
  1. VENTAVIS [Suspect]
     Active Substance: ILOPROST
     Dosage: UNK, 6-9X/DAY
     Route: 055
  2. VENTAVIS [Suspect]
     Active Substance: ILOPROST
     Indication: PULMONARY ARTERIAL HYPERTENSION
     Dosage: 5 MCG, 4-6/DAY
     Route: 055
     Dates: start: 20100611
  3. COUMADIN [Concomitant]
     Active Substance: WARFARIN SODIUM
  4. OPSUMIT [Suspect]
     Active Substance: MACITENTAN
     Indication: PULMONARY ARTERIAL HYPERTENSION
     Dosage: 10 MG, QD
     Route: 048
     Dates: start: 20151118
  5. REMODULIN [Suspect]
     Active Substance: TREPROSTINIL
     Indication: PRODUCT USED FOR UNKNOWN INDICATION
     Dosage: UNK
     Route: 058
     Dates: start: 20151202
  6. REVATIO [Concomitant]
     Active Substance: SILDENAFIL CITRATE

REACTIONS (11)
  - Infusion site pain [Unknown]
  - Infusion site cyst [Recovered/Resolved]
  - International normalised ratio increased [Unknown]
  - Staphylococcal infection [Recovered/Resolved]
  - Palpitations [Unknown]
  - Infusion site swelling [Recovered/Resolved]
  - Infusion site erythema [Unknown]
  - Infusion site warmth [Unknown]
  - Wound [Recovered/Resolved]
  - Injection site abscess [Recovered/Resolved]
  - Blood pressure increased [Unknown]

NARRATIVE: CASE EVENT DATE: 20151120
